FAERS Safety Report 18618571 (Version 8)
Quarter: 2022Q1

REPORT INFORMATION
  Report Type: Spontaneous
  Country: US (occurrence: US)
  Receive Date: 20201215
  Receipt Date: 20220310
  Transmission Date: 20220423
  Serious: No
  Sender: FDA-Public Use
  Company Number: US-PFIZER INC-2020476686

PATIENT
  Age: 66 Year
  Sex: Female
  Weight: 81.19 kg

DRUGS (6)
  1. IBRANCE [Suspect]
     Active Substance: PALBOCICLIB
     Indication: Breast cancer female
     Dosage: 125 MG
     Dates: start: 20201130
  2. IBRANCE [Suspect]
     Active Substance: PALBOCICLIB
     Dosage: 100 MG
     Dates: start: 20201130
  3. IBRANCE [Suspect]
     Active Substance: PALBOCICLIB
     Dosage: 125 MG, CYCLIC (FOR 3 WEEKS, THEN OFF FOR 7 DAYS)
     Dates: start: 20201201
  4. IBRANCE [Suspect]
     Active Substance: PALBOCICLIB
     Dosage: 75 MG, CYCLIC  (TWO WEEKS ON AND TWO WEEKS OFF)
     Dates: start: 20210131
  5. IBRANCE [Suspect]
     Active Substance: PALBOCICLIB
     Dosage: 75 MG, CYCLIC (2 WEEKS ON AND 2 WEEKS OFF)
     Dates: start: 20220204, end: 20220204
  6. VERZENIO [Concomitant]
     Active Substance: ABEMACICLIB
     Dosage: UNK
     Dates: start: 20220204

REACTIONS (14)
  - Off label use [Unknown]
  - Product administration error [Unknown]
  - Product storage error [Unknown]
  - Product use issue [Unknown]
  - Product use issue [Unknown]
  - Alopecia [Unknown]
  - Arthralgia [Unknown]
  - Depression [Unknown]
  - Fatigue [Not Recovered/Not Resolved]
  - Full blood count abnormal [Recovering/Resolving]
  - Full blood count decreased [Unknown]
  - Lymphocyte count decreased [Unknown]
  - Mood altered [Not Recovered/Not Resolved]
  - White blood cell count decreased [Not Recovered/Not Resolved]

NARRATIVE: CASE EVENT DATE: 20201201
